FAERS Safety Report 6582672-9 (Version None)
Quarter: 2010Q1

REPORT INFORMATION
  Report Type: 
  Country: None (occurrence: None)
  Receive Date: 20100212
  Receipt Date: 20100212
  Transmission Date: 20100710
  Serious: No
  Sender: FDA-Public Use
  Company Number: None

PATIENT
  Age: 34 Year
  Sex: Male
  Weight: 111.6 kg

DRUGS (1)
  1. PIROXICAM [Suspect]
     Indication: PAIN
     Dosage: 20 MG OTHER PO
     Route: 048
     Dates: start: 20090924, end: 20091001

REACTIONS (2)
  - DYSPNOEA [None]
  - RASH [None]
